FAERS Safety Report 21340656 (Version 1)
Quarter: 2022Q3

REPORT INFORMATION
  Report Type: Spontaneous
  Country: None (occurrence: US)
  Receive Date: 20220916
  Receipt Date: 20220916
  Transmission Date: 20221027
  Serious: No
  Sender: FDA-Public Use
  Company Number: US-ACI HealthCare Limited-2132909

PATIENT
  Age: 59 Year
  Sex: Female
  Weight: 122 kg

DRUGS (21)
  1. GABAPENTIN [Suspect]
     Active Substance: GABAPENTIN
     Indication: Arthritis
     Route: 065
  2. KORLYM [Suspect]
     Active Substance: MIFEPRISTONE
     Route: 048
     Dates: start: 20220126, end: 20220511
  3. OXYBUTYNIN. [Suspect]
     Active Substance: OXYBUTYNIN CHLORIDE
     Route: 065
  4. ALLOPURINOL [Concomitant]
     Active Substance: ALLOPURINOL
     Route: 065
  5. ALPRAZOLAM [Concomitant]
     Active Substance: ALPRAZOLAM
     Route: 065
  6. BACLOFEN [Concomitant]
     Active Substance: BACLOFEN
     Route: 065
  7. COLACE [Concomitant]
     Active Substance: DOCUSATE SODIUM
     Route: 065
  8. CYMBALTA [Concomitant]
     Active Substance: DULOXETINE HYDROCHLORIDE
     Route: 065
  9. FAMOTIDINE [Concomitant]
     Active Substance: FAMOTIDINE
     Route: 065
  10. GEMFIBROZIL [Concomitant]
     Active Substance: GEMFIBROZIL
     Route: 065
  11. LEVOTHYROXINE [Concomitant]
     Active Substance: LEVOTHYROXINE
     Route: 065
  12. MELOXICAM [Concomitant]
     Active Substance: MELOXICAM
     Route: 065
  13. METFORMIN [Concomitant]
     Active Substance: METFORMIN HYDROCHLORIDE
     Route: 065
  14. METOPROLOL [Concomitant]
     Active Substance: METOPROLOL
     Route: 065
  15. Neuriva brain performance [Concomitant]
     Route: 065
  16. PANTOPRAZOLE SODIUM [Concomitant]
     Active Substance: PANTOPRAZOLE SODIUM
     Route: 065
  17. PIOGLITAZONE [Concomitant]
     Active Substance: PIOGLITAZONE
     Route: 065
  18. FLUTICASONE PROPIONATE [Concomitant]
     Active Substance: FLUTICASONE PROPIONATE
     Route: 065
  19. SUCRALFATE [Concomitant]
     Active Substance: SUCRALFATE
     Route: 065
  20. TRAMADOL [Concomitant]
     Active Substance: TRAMADOL
     Route: 065
  21. IRON [Concomitant]
     Active Substance: IRON
     Route: 065

REACTIONS (12)
  - Blood glucose increased [Recovered/Resolved]
  - Stress [Unknown]
  - Cough [Unknown]
  - Sneezing [Unknown]
  - Sinus disorder [Unknown]
  - Fall [Unknown]
  - Blood pressure increased [Recovered/Resolved]
  - Nausea [Recovered/Resolved]
  - Malaise [Unknown]
  - Dizziness [Recovered/Resolved]
  - Fatigue [Unknown]
  - Product use in unapproved indication [Unknown]

NARRATIVE: CASE EVENT DATE: 20220101
